FAERS Safety Report 5347319-8 (Version None)
Quarter: 2007Q2

REPORT INFORMATION
  Report Type: 
  Country: None (occurrence: None)
  Receive Date: 20070606
  Receipt Date: 20070525
  Transmission Date: 20071010
  Serious: Yes (Death, Hospitalization)
  Sender: FDA-Public Use
  Company Number: DE-JNJFOC-20060906592

PATIENT
  Sex: Female
  Weight: 79 kg

DRUGS (2)
  1. INFLIXIMAB [Suspect]
     Indication: CROHN'S DISEASE
     Route: 042
  2. PENTASA [Concomitant]
     Indication: CROHN'S DISEASE
     Route: 065

REACTIONS (1)
  - METASTASES TO PERITONEUM [None]
